FAERS Safety Report 15836621 (Version 2)
Quarter: 2019Q1

REPORT INFORMATION
  Report Type: Report from Study
  Country: None (occurrence: CA)
  Receive Date: 20190117
  Receipt Date: 20190207
  Transmission Date: 20190417
  Serious: Yes (Hospitalization)
  Sender: FDA-Public Use
  Company Number: CA-ABBVIE-19K-028-2628375-00

PATIENT
  Age: 55 Year
  Sex: Female

DRUGS (2)
  1. HUMIRA [Suspect]
     Active Substance: ADALIMUMAB
     Route: 058
  2. HUMIRA [Suspect]
     Active Substance: ADALIMUMAB
     Indication: RHEUMATOID ARTHRITIS
     Route: 058
     Dates: start: 20161205

REACTIONS (3)
  - Atrial fibrillation [Not Recovered/Not Resolved]
  - Sleep apnoea syndrome [Not Recovered/Not Resolved]
  - Rheumatoid arthritis [Unknown]

NARRATIVE: CASE EVENT DATE: 201812
